FAERS Safety Report 8763454 (Version 1)
Quarter: 2012Q4

REPORT INFORMATION
  Report Type: 
  Country: US (occurrence: US)
  Receive Date: 20120831
  Receipt Date: 20120831
  Transmission Date: 20130627
  Serious: No
  Sender: FDA-Public Use
  Company Number: US-B.I. PHARMACEUTICALS,INC./RIDGEFIELD-2012-BP-20821BP

PATIENT
  Age: 80 Year
  Sex: Female

DRUGS (7)
  1. ZANTAC 150 (RANITIDINE HYDROCHLORIDE) [Suspect]
     Indication: DYSPEPSIA
     Dosage: 150 mg
     Route: 048
     Dates: start: 20120819, end: 20120823
  2. ZANTAC 150 (RANITIDINE HYDROCHLORIDE) [Suspect]
     Dosage: 300 mg
     Route: 048
     Dates: start: 20120823
  3. EVISTA [Concomitant]
     Indication: OSTEOPOROSIS
     Dosage: 60 mg
     Route: 048
  4. TAZTIA [Concomitant]
     Indication: HYPERTENSION
     Dosage: 240 mg
     Route: 048
     Dates: start: 2010
  5. TAZTIA [Concomitant]
     Indication: THROMBOSIS
  6. MULTIVITAMIN [Concomitant]
     Indication: SUPPLEMENTATION THERAPY
     Route: 048
  7. CALCIUM [Concomitant]
     Indication: SUPPLEMENTATION THERAPY
     Route: 048

REACTIONS (2)
  - Rash generalised [Not Recovered/Not Resolved]
  - Blister [Not Recovered/Not Resolved]
